FAERS Safety Report 24759853 (Version 2)
Quarter: 2025Q1

REPORT INFORMATION
  Report Type: Spontaneous
  Country: US (occurrence: US)
  Receive Date: 20241220
  Receipt Date: 20250113
  Transmission Date: 20250408
  Serious: No
  Sender: MERCK
  Company Number: US-009507513-2412USA006887

PATIENT
  Age: 71 Year
  Sex: Male

DRUGS (2)
  1. DIFICID [Suspect]
     Active Substance: FIDAXOMICIN
     Indication: Infection
     Dosage: 200 MILLIGRAM, BID
     Route: 048
     Dates: start: 20241203, end: 20241212
  2. DIFICID [Suspect]
     Active Substance: FIDAXOMICIN
     Indication: Diarrhoea

REACTIONS (1)
  - Drug ineffective [Unknown]

NARRATIVE: CASE EVENT DATE: 20241212
